FAERS Safety Report 6880924-6 (Version None)
Quarter: 2010Q3

REPORT INFORMATION
  Report Type: 
  Country: None (occurrence: None)
  Receive Date: 20100728
  Receipt Date: 20100720
  Transmission Date: 20110219
  Serious: Yes (Hospitalization, Other)
  Sender: FDA-Public Use
  Company Number: US-GENENTECH-303638

PATIENT
  Sex: Female

DRUGS (7)
  1. XOLAIR [Suspect]
     Indication: ASTHMA
     Dosage: 150 MG, Q4W
     Route: 058
     Dates: start: 20100512, end: 20100609
  2. ADVAIR DISKUS 100/50 [Concomitant]
     Indication: ASTHMA
     Dosage: 1 PUFF, BID
     Route: 055
     Dates: start: 20100310
  3. SINGULAIR [Concomitant]
     Indication: ASTHMA
     Dosage: 10 MG, QD
     Route: 055
     Dates: start: 20100310
  4. QVAR 40 [Concomitant]
     Indication: ASTHMA
     Dosage: 1 PUFF, BID
     Route: 055
     Dates: start: 20100310
  5. ZYRTEC [Concomitant]
     Indication: RHINITIS
     Dosage: 10 MG, QHS
     Route: 048
     Dates: start: 20100310
  6. ALBUTEROL [Concomitant]
     Indication: ASTHMA
     Dosage: UNK
     Route: 055
     Dates: start: 20100310
  7. EPIPEN [Concomitant]
     Indication: ASTHMA
     Dosage: UNK
     Dates: start: 20100512

REACTIONS (1)
  - ANAPHYLACTIC REACTION [None]
